FAERS Safety Report 6119168-4 (Version None)
Quarter: 2009Q1

REPORT INFORMATION
  Report Type: 
  Country: None (occurrence: None)
  Receive Date: 20090311
  Receipt Date: 20090224
  Transmission Date: 20090719
  Serious: Yes (Hospitalization)
  Sender: FDA-Public Use
  Company Number: 2009S1003265

PATIENT
  Sex: Female

DRUGS (3)
  1. PHENYTOIN [Suspect]
     Indication: GRAND MAL CONVULSION
     Dosage: 600 MG;DAILY
  2. VALPROIC ACID [Concomitant]
  3. CLONAZEPAM [Concomitant]

REACTIONS (9)
  - AMYOTROPHIC LATERAL SCLEROSIS [None]
  - ANTICONVULSANT DRUG LEVEL ABOVE THERAPEUTIC [None]
  - ASPIRATION [None]
  - DIPLOPIA [None]
  - DYSARTHRIA [None]
  - HEPATIC STEATOSIS [None]
  - HYPOALBUMINAEMIA [None]
  - MOTOR NEURONE DISEASE [None]
  - SEPSIS [None]
